FAERS Safety Report 5920573-7 (Version None)
Quarter: 2008Q4

REPORT INFORMATION
  Report Type: 
  Country: None (occurrence: None)
  Receive Date: 20081016
  Receipt Date: 20081008
  Transmission Date: 20090506
  Serious: Yes (Life-Threatening, Hospitalization)
  Sender: FDA-Public Use
  Company Number: PHHO2008FR07149

PATIENT
  Sex: Male
  Weight: 115 kg

DRUGS (1)
  1. TASIGNA [Suspect]
     Indication: CHRONIC MYELOID LEUKAEMIA
     Dosage: UNK
     Route: 048
     Dates: start: 20061220, end: 20080531

REACTIONS (6)
  - ACUTE CORONARY SYNDROME [None]
  - ANGINA PECTORIS [None]
  - ANGIOPLASTY [None]
  - CHEST PAIN [None]
  - CORONARY ARTERY STENOSIS [None]
  - STENT PLACEMENT [None]
